FAERS Safety Report 21234922 (Version 1)
Quarter: 2022Q3

REPORT INFORMATION
  Report Type: Spontaneous
  Country: AU (occurrence: AU)
  Receive Date: 20220821
  Receipt Date: 20220821
  Transmission Date: 20221027
  Serious: Yes (Hospitalization, Other)
  Sender: FDA-Public Use
  Company Number: AU-JNJFOC-20220826976

PATIENT
  Age: 78 Year
  Sex: Female
  Weight: 190 kg

DRUGS (3)
  1. INVEGA SUSTENNA [Suspect]
     Active Substance: PALIPERIDONE PALMITATE
     Indication: Schizophrenia
     Route: 030
     Dates: start: 202004
  2. INVEGA SUSTENNA [Suspect]
     Active Substance: PALIPERIDONE PALMITATE
  3. INVEGA SUSTENNA [Suspect]
     Active Substance: PALIPERIDONE PALMITATE

REACTIONS (6)
  - Sepsis [Unknown]
  - Psychomotor hyperactivity [Unknown]
  - Delirium [Unknown]
  - Gait inability [Unknown]
  - Poor personal hygiene [Unknown]
  - Off label use [Unknown]

NARRATIVE: CASE EVENT DATE: 20220801
